FAERS Safety Report 4376802-7 (Version None)
Quarter: 2004Q2

REPORT INFORMATION
  Report Type: 
  Country: None (occurrence: None)
  Receive Date: 20040608
  Receipt Date: 20040521
  Transmission Date: 20050107
  Serious: Yes (Death, Hospitalization)
  Sender: FDA-Public Use
  Company Number: 8-99011-013X

PATIENT
  Age: 74 Year
  Sex: Male

DRUGS (2)
  1. MYLOTARG [Suspect]
     Indication: ACUTE MYELOID LEUKAEMIA
     Dosage: 9 MG/M(2), INTRAVENOUS; 9 MG/M^2 1X PER 1 DAY, INTRAVENOUS
     Route: 042
     Dates: start: 19981125, end: 19981125
  2. MYLOTARG [Suspect]
     Indication: ACUTE MYELOID LEUKAEMIA
     Dosage: 9 MG/M(2), INTRAVENOUS; 9 MG/M^2 1X PER 1 DAY, INTRAVENOUS
     Route: 042
     Dates: start: 19981209, end: 19981209

REACTIONS (15)
  - ANGIOPATHY [None]
  - ANOREXIA [None]
  - DIARRHOEA [None]
  - EPISTAXIS [None]
  - GALLBLADDER DISORDER [None]
  - HEPATIC FAILURE [None]
  - HYPERBILIRUBINAEMIA [None]
  - LUNG NEOPLASM [None]
  - OEDEMA PERIPHERAL [None]
  - PROTHROMBIN TIME PROLONGED [None]
  - RENAL FAILURE [None]
  - RESPIRATORY TRACT INFECTION FUNGAL [None]
  - VENOOCCLUSIVE LIVER DISEASE [None]
  - VENOUS INSUFFICIENCY [None]
  - VOMITING [None]
